FAERS Safety Report 25786698 (Version 1)
Quarter: 2025Q3

REPORT INFORMATION
  Report Type: Spontaneous
  Country: US (occurrence: US)
  Receive Date: 20250910
  Receipt Date: 20250910
  Transmission Date: 20251021
  Serious: No
  Sender: PFIZER
  Company Number: US-PFIZER INC-202500176946

PATIENT
  Age: 41 Year
  Sex: Female

DRUGS (9)
  1. XELJANZ [Suspect]
     Active Substance: TOFACITINIB CITRATE
     Dosage: 5 MG, 2X/DAY
  2. ESTRADIOL [Concomitant]
     Active Substance: ESTRADIOL
  3. VALTREX [Concomitant]
     Active Substance: VALACYCLOVIR HYDROCHLORIDE
  4. ATIVAN [Concomitant]
     Active Substance: LORAZEPAM
  5. LEVOTHYROXINE SODIUM [Concomitant]
     Active Substance: LEVOTHYROXINE SODIUM
  6. PROGESTERONE [Concomitant]
     Active Substance: PROGESTERONE
  7. CAPLYTA [Concomitant]
     Active Substance: LUMATEPERONE
  8. NURTEC ODT [Concomitant]
     Active Substance: RIMEGEPANT SULFATE
  9. BOTOX [Concomitant]
     Active Substance: ONABOTULINUMTOXINA

REACTIONS (3)
  - Illness [Unknown]
  - Pain [Recovered/Resolved]
  - Off label use [Unknown]
